FAERS Safety Report 20152800 (Version 2)
Quarter: 2022Q1

REPORT INFORMATION
  Report Type: Spontaneous
  Country: US (occurrence: US)
  Receive Date: 20211206
  Receipt Date: 20220105
  Transmission Date: 20220423
  Serious: Yes (Hospitalization)
  Sender: FDA-Public Use
  Company Number: US-ELI_LILLY_AND_COMPANY-US202111010919

PATIENT

DRUGS (3)
  1. GLUCAGON [Suspect]
     Active Substance: GLUCAGON
     Indication: Hypoglycaemia
     Dosage: UNK UNK, UNKNOWN
     Route: 065
     Dates: start: 2016
  2. DEXTROSE [Suspect]
     Active Substance: DEXTROSE
     Indication: Hypoglycaemia
     Dosage: UNK UNK, UNKNOWN
     Route: 065
  3. DEXTROSE [Suspect]
     Active Substance: DEXTROSE
     Indication: Hypoglycaemia
     Dosage: UNK UNK, UNKNOWN
     Route: 065

REACTIONS (6)
  - Hypoglycaemia [Unknown]
  - Dumping syndrome [Unknown]
  - Blood glucose decreased [Unknown]
  - Impaired gastric emptying [Unknown]
  - Adverse food reaction [Unknown]
  - Product dose omission issue [Unknown]
